FAERS Safety Report 23064836 (Version 1)
Quarter: 2023Q4

REPORT INFORMATION
  Report Type: Spontaneous
  Country: NL (occurrence: NL)
  Receive Date: 20231013
  Receipt Date: 20231013
  Transmission Date: 20240110
  Serious: Yes (Death)
  Sender: FDA-Public Use
  Company Number: None

PATIENT

DRUGS (1)
  1. ADALIMUMAB [Suspect]
     Active Substance: ADALIMUMAB
     Indication: Crohn^s disease
     Dosage: 40 MG SC ONCE EVERY 14 DAYS, ADALIMUMAB INJVLST 50MG/ML
     Route: 064
     Dates: start: 20190101

REACTIONS (3)
  - Maternal exposure during pregnancy [Unknown]
  - Necrotising enterocolitis neonatal [Fatal]
  - Sepsis neonatal [Fatal]
